FAERS Safety Report 11757335 (Version 1)
Quarter: 2015Q4

REPORT INFORMATION
  Report Type: Report from Study
  Country: US (occurrence: None)
  Receive Date: 20151117
  Receipt Date: 20151117
  Transmission Date: 20160304
  Serious: Yes (Other)
  Sender: FDA-Public Use
  Company Number: 2015US004870

PATIENT
  Age: 50 Year
  Sex: Female

DRUGS (5)
  1. DICYCLOMINE [Concomitant]
     Active Substance: DICYCLOMINE HYDROCHLORIDE
  2. GLASSIA [Suspect]
     Active Substance: .ALPHA.1-PROTEINASE INHIBITOR HUMAN
     Indication: ALPHA-1 ANTI-TRYPSIN DEFICIENCY
     Dosage: 15 MINUTE DRIP
     Dates: start: 2009
  3. RELPAX [Concomitant]
     Active Substance: ELETRIPTAN HYDROBROMIDE
  4. DIAZEPAM. [Concomitant]
     Active Substance: DIAZEPAM
  5. PROTONIX [Concomitant]
     Active Substance: PANTOPRAZOLE SODIUM

REACTIONS (5)
  - Pneumonia [None]
  - Condition aggravated [None]
  - Asthma [None]
  - Bronchitis [None]
  - Laryngitis [None]

NARRATIVE: CASE EVENT DATE: 20150526
